FAERS Safety Report 18623381 (Version 3)
Quarter: 2021Q1

REPORT INFORMATION
  Report Type: Report from Study
  Country: US (occurrence: US)
  Receive Date: 20201216
  Receipt Date: 20210127
  Transmission Date: 20210419
  Serious: Yes (Hospitalization)
  Sender: FDA-Public Use
  Company Number: US-ROCHE-2730248

PATIENT
  Age: 64 Year
  Sex: Male
  Weight: 116.1 kg

DRUGS (35)
  1. ISCALIMAB [Suspect]
     Active Substance: ISCALIMAB
     Indication: LIVER TRANSPLANT
     Route: 058
     Dates: start: 20200831
  2. VALGANCICLOVIR HYDROCHLORIDE. [Suspect]
     Active Substance: VALGANCICLOVIR HYDROCHLORIDE
     Indication: INFECTION PROPHYLAXIS
     Route: 065
     Dates: start: 20200825, end: 20201106
  3. ERGOCALCIFEROL. [Concomitant]
     Active Substance: ERGOCALCIFEROL
     Dates: start: 20190801
  4. ERGOCALCIFEROL. [Concomitant]
     Active Substance: ERGOCALCIFEROL
     Dates: start: 20190801
  5. MYCOPHENOLATE MOFETIL. [Suspect]
     Active Substance: MYCOPHENOLATE MOFETIL
     Route: 048
     Dates: start: 20201112
  6. LOPRESSOR [Concomitant]
     Active Substance: METOPROLOL TARTRATE
     Dates: start: 20200828, end: 20201103
  7. COLLAGENASE [Concomitant]
     Active Substance: COLLAGENASE CLOSTRIDIUM HISTOLYTICUM
     Dates: start: 20200902
  8. ONDANSETRON HYDROCHLORIDE. [Concomitant]
     Active Substance: ONDANSETRON HYDROCHLORIDE
     Dates: start: 20200801
  9. MYCOPHENOLATE MOFETIL. [Suspect]
     Active Substance: MYCOPHENOLATE MOFETIL
     Route: 048
     Dates: start: 20201001
  10. ASPIRIN EC [Concomitant]
     Active Substance: ASPIRIN
     Dates: start: 20200825
  11. COLLAGENASE [Concomitant]
     Active Substance: COLLAGENASE CLOSTRIDIUM HISTOLYTICUM
     Dates: start: 20200902
  12. GABAPENTIN. [Concomitant]
     Active Substance: GABAPENTIN
     Dates: start: 20200902
  13. OXYCODONE [Concomitant]
     Active Substance: OXYCODONE
     Dates: start: 20200902
  14. CYMBALTA [Concomitant]
     Active Substance: DULOXETINE HYDROCHLORIDE
     Dates: start: 20200902
  15. INDERAL [Concomitant]
     Active Substance: PROPRANOLOL HYDROCHLORIDE
     Dates: start: 20170101
  16. PROCARDIA XL [Concomitant]
     Active Substance: NIFEDIPINE
     Dates: start: 20200807
  17. CALCIUM D3 [Concomitant]
     Active Substance: CALCIUM\CHOLECALCIFEROL
     Dates: start: 20180901
  18. GABAPENTIN. [Concomitant]
     Active Substance: GABAPENTIN
     Dates: start: 20200902
  19. LASIX [Concomitant]
     Active Substance: FUROSEMIDE
     Dates: start: 20200701
  20. OXYCODONE AND ACETAMINOPHEN [Concomitant]
     Active Substance: ACETAMINOPHEN\OXYCODONE HYDROCHLORIDE
     Dates: start: 20120101
  21. TRAMADOL. [Concomitant]
     Active Substance: TRAMADOL
     Dates: start: 20190101
  22. MACROGOL [Concomitant]
     Active Substance: POLYETHYLENE GLYCOLS
  23. MYCOPHENOLATE MOFETIL. [Suspect]
     Active Substance: MYCOPHENOLATE MOFETIL
     Indication: LIVER TRANSPLANT
     Route: 048
     Dates: start: 20201103, end: 20201106
  24. DAPSONE. [Concomitant]
     Active Substance: DAPSONE
     Dates: start: 20200825
  25. COLACE [Concomitant]
     Active Substance: DOCUSATE SODIUM
     Dates: start: 20200826
  26. TRAZODONE [Concomitant]
     Active Substance: TRAZODONE HYDROCHLORIDE
     Dates: start: 20200601
  27. ACETAMINOPHEN. [Concomitant]
     Active Substance: ACETAMINOPHEN
     Dates: start: 20200824
  28. OXYCODONE [Concomitant]
     Active Substance: OXYCODONE
     Dates: start: 20200902
  29. DIOVAN [Concomitant]
     Active Substance: VALSARTAN
     Dates: start: 20180101
  30. PREDNISONE. [Concomitant]
     Active Substance: PREDNISONE
     Dates: start: 20200914, end: 20201027
  31. MYCOPHENOLATE MOFETIL. [Suspect]
     Active Substance: MYCOPHENOLATE MOFETIL
     Indication: LIVER TRANSPLANT
     Route: 048
     Dates: start: 20200830
  32. LASIX [Concomitant]
     Active Substance: FUROSEMIDE
     Dates: start: 20200701
  33. MACROGOL [Concomitant]
     Active Substance: POLYETHYLENE GLYCOLS
     Dates: start: 20200902
  34. AMLODIPINE [Concomitant]
     Active Substance: AMLODIPINE BESYLATE
     Dates: start: 20201020, end: 20201103
  35. OMEPRAZOLE. [Concomitant]
     Active Substance: OMEPRAZOLE
     Dates: start: 20200201

REACTIONS (1)
  - Leukopenia [Recovered/Resolved]

NARRATIVE: CASE EVENT DATE: 20201106
